FAERS Safety Report 5415340-7 (Version None)
Quarter: 2007Q3

REPORT INFORMATION
  Report Type: 
  Country: None (occurrence: None)
  Receive Date: 20070813
  Receipt Date: 20070802
  Transmission Date: 20080115
  Serious: Yes (Other)
  Sender: FDA-Public Use
  Company Number: GXKR2007DK06677

PATIENT
  Age: 76 Year
  Sex: Female
  Weight: 82 kg

DRUGS (6)
  1. NIMADORM (NGX)(ZOLPIDEM) UNKNOWN, 10MG [Suspect]
     Indication: INSOMNIA
     Dosage: 20-30 MG, ORAL; 10 MG; QD, ORAL
     Route: 048
     Dates: start: 20051020
  2. NIMADORM (NGX)(ZOLPIDEM) UNKNOWN, 10MG [Suspect]
     Indication: INSOMNIA
     Dosage: 20-30 MG, ORAL; 10 MG; QD, ORAL
     Route: 048
     Dates: start: 20070626
  3. REMERON [Suspect]
     Dosage: 15 MG, ORAL
     Dates: start: 20051020
  4. REMERON [Suspect]
     Dosage: 15 MG, ORAL
     Dates: start: 20070626
  5. SINQUAN (DOXEPIN HYDROCHLORIDE) [Concomitant]
  6. TRADOLAN (TRAMADOL HYDROCHLORIDE) [Concomitant]

REACTIONS (3)
  - AMNESIA [None]
  - DRUG WITHDRAWAL SYNDROME [None]
  - TINNITUS [None]
